FAERS Safety Report 26149524 (Version 1)
Quarter: 2025Q4

REPORT INFORMATION
  Report Type: Spontaneous
  Country: US (occurrence: US)
  Receive Date: 20251212
  Receipt Date: 20251212
  Transmission Date: 20260117
  Serious: Yes (Death, Other)
  Sender: SUNOVION
  Company Number: US-SMPA-2025SPA016578

PATIENT
  Age: 99 Year
  Sex: Male

DRUGS (27)
  1. ORGOVYX [Suspect]
     Active Substance: RELUGOLIX
     Indication: Prostate cancer
     Dosage: 360 MG, SINGLE
     Route: 048
     Dates: start: 20250804, end: 20250804
  2. ORGOVYX [Suspect]
     Active Substance: RELUGOLIX
     Dosage: 120 MG, QD
     Route: 048
     Dates: start: 20250805
  3. AMLODIPINE [Concomitant]
     Active Substance: AMLODIPINE BESYLATE
     Dosage: UNK
  4. ASPIRIN [Concomitant]
     Active Substance: ASPIRIN
     Dosage: UNK
  5. CRANBERRY [Concomitant]
     Active Substance: CRANBERRY
     Dosage: UNK
  6. CALCIUM CARBONATE\VITAMIN D [Concomitant]
     Active Substance: CALCIUM CARBONATE\VITAMIN D
     Dosage: UNK
  7. CETIRIZINE [Concomitant]
     Active Substance: CETIRIZINE HYDROCHLORIDE
     Dosage: UNK
  8. CIMETIDINE [Concomitant]
     Active Substance: CIMETIDINE
     Dosage: UNK
  9. CLOBETASOL [Concomitant]
     Active Substance: CLOBETASOL
     Dosage: UNK
  10. COLACE [Concomitant]
     Active Substance: DOCUSATE SODIUM
     Dosage: UNK
  11. Lutein;Vitamins nos [Concomitant]
     Dosage: UNK
  12. GUAIFENESIN [Concomitant]
     Active Substance: GUAIFENESIN
     Dosage: UNK
  13. DEXTROMETHORPHAN HYDROBROMIDE\GUAIFENESIN [Concomitant]
     Active Substance: DEXTROMETHORPHAN HYDROBROMIDE\GUAIFENESIN
     Dosage: UNK
  14. IBUPROFEN [Concomitant]
     Active Substance: IBUPROFEN
     Dosage: UNK
  15. KETOCONAZOLE [Concomitant]
     Active Substance: KETOCONAZOLE
     Dosage: UNK
  16. LASIX [Concomitant]
     Active Substance: FUROSEMIDE
     Dosage: UNK
  17. LIDOCAINE [Concomitant]
     Active Substance: LIDOCAINE
     Dosage: UNK
  18. LOSARTAN [Concomitant]
     Active Substance: LOSARTAN
     Dosage: UNK
  19. MOMETASONE [Concomitant]
     Active Substance: MOMETASONE
     Dosage: UNK
  20. REFRESH PLUS [Concomitant]
     Active Substance: CARBOXYMETHYLCELLULOSE SODIUM
     Dosage: UNK
     Route: 047
  21. TIMOLOL MALEATE [Concomitant]
     Active Substance: TIMOLOL MALEATE
     Route: 047
  22. TRAMADOL [Concomitant]
     Active Substance: TRAMADOL
     Dosage: UNK
  23. TRIAMCINOLONE [Concomitant]
     Active Substance: TRIAMCINOLONE
     Dosage: UNK
  24. TYLENOL [Concomitant]
     Active Substance: ACETAMINOPHEN
     Dosage: UNK
  25. VITAMIN D3 [Concomitant]
     Active Substance: CHOLECALCIFEROL
     Dosage: UNK
  26. ZETIA [Concomitant]
     Active Substance: EZETIMIBE
     Dosage: UNK
  27. ZIOPTAN [Concomitant]
     Active Substance: TAFLUPROST
     Route: 047

REACTIONS (2)
  - Death [Fatal]
  - Rehabilitation therapy [Unknown]
